FAERS Safety Report 9376266 (Version 1)
Quarter: 2013Q3

REPORT INFORMATION
  Report Type: Spontaneous
  Country: FR (occurrence: FR)
  Receive Date: 20130701
  Receipt Date: 20130701
  Transmission Date: 20140515
  Serious: Yes (Hospitalization)
  Sender: FDA-Public Use
  Company Number: PHHY2013FR065485

PATIENT
  Age: 63 Year
  Sex: Male

DRUGS (6)
  1. CUBICIN [Suspect]
     Dosage: 4 MG/KG, QD
     Dates: start: 20130102, end: 20130104
  2. VANCOMYCIN [Suspect]
     Dosage: 1 G, QD
     Route: 042
     Dates: start: 20121207, end: 20130101
  3. CORDARONE [Suspect]
     Dosage: 200 MG, QD
     Route: 048
     Dates: start: 20121215, end: 20130107
  4. AZACTAM [Suspect]
     Dosage: 500 MG, QD
     Route: 042
     Dates: start: 20130106, end: 20130106
  5. METRONIDAZOLE [Suspect]
     Dosage: 500 MG, QD
     Route: 042
     Dates: start: 20130106, end: 20130106
  6. COLCHIMAX [Suspect]

REACTIONS (4)
  - Hepatic enzyme increased [Recovered/Resolved]
  - Renal failure [Not Recovered/Not Resolved]
  - Rash [Recovered/Resolved]
  - Eosinophil count increased [Recovered/Resolved]
